FAERS Safety Report 6644828-6 (Version None)
Quarter: 2010Q1

REPORT INFORMATION
  Report Type: 
  Country: None (occurrence: None)
  Receive Date: 20100317
  Receipt Date: 20100301
  Transmission Date: 20100710
  Serious: Yes (Death)
  Sender: FDA-Public Use
  Company Number: DSA_42698_2010

PATIENT
  Age: 42 Year
  Sex: Male

DRUGS (7)
  1. ATIVAN [Suspect]
     Indication: DRUG USE FOR UNKNOWN INDICATION
     Dosage: (NOT THE PRESCRIBED AMOUNT)
  2. OXYCODONE [Concomitant]
  3. OXYMORPHONE [Concomitant]
  4. HYDROCODONE [Concomitant]
  5. DIHYDROCODEINE BITARTRATE INJ [Concomitant]
  6. CITALOPRAM HYDROBROMIDE [Concomitant]
  7. TETRAHYDROCANNABINOL [Concomitant]

REACTIONS (2)
  - COMPLETED SUICIDE [None]
  - DRUG TOXICITY [None]
